FAERS Safety Report 10019121 (Version 1)
Quarter: 2014Q1

REPORT INFORMATION
  Report Type: Spontaneous
  Country: US (occurrence: None)
  Receive Date: 20140314
  Receipt Date: 20140314
  Transmission Date: 20141002
  Serious: Yes (Hospitalization)
  Sender: FDA-Public Use
  Company Number: None

PATIENT
  Age: 63 Year
  Sex: Female
  Weight: 84.5 kg

DRUGS (3)
  1. NITROFURANTOIN [Suspect]
     Indication: URINARY TRACT INFECTION
  2. CECLOR [Concomitant]
  3. NITROFURANTOIN [Concomitant]

REACTIONS (4)
  - Syncope [None]
  - Dyspnoea exertional [None]
  - Palpitations [None]
  - Pulmonary toxicity [None]
